FAERS Safety Report 5004762-4 (Version None)
Quarter: 2006Q2

REPORT INFORMATION
  Report Type: 
  Country: None (occurrence: None)
  Receive Date: 20060517
  Receipt Date: 20050414
  Transmission Date: 20061013
  Serious: Yes (Hospitalization)
  Sender: FDA-Public Use
  Company Number: US-MERCK-0504USA02755

PATIENT
  Age: 43 Year
  Sex: Female
  Weight: 102 kg

DRUGS (5)
  1. VIOXX [Suspect]
     Indication: ARTHRALGIA
     Route: 048
     Dates: start: 20000101, end: 20040101
  2. VIOXX [Suspect]
     Route: 048
     Dates: start: 20000101, end: 20040101
  3. VIOXX [Suspect]
     Route: 048
     Dates: start: 20000101, end: 20040101
  4. VIOXX [Suspect]
     Route: 048
     Dates: start: 20000101, end: 20040101
  5. [THERAPY UNSPECIFIED] [Concomitant]
     Route: 065

REACTIONS (10)
  - ADVERSE EVENT [None]
  - CHEST PAIN [None]
  - DIZZINESS [None]
  - HAEMORRHAGE [None]
  - HERNIA [None]
  - INJURY [None]
  - PALPITATIONS [None]
  - RENAL DISORDER [None]
  - TUBAL LIGATION [None]
  - ULCER [None]
